FAERS Safety Report 18447830 (Version 2)
Quarter: 2020Q4

REPORT INFORMATION
  Report Type: Report from Study
  Country: JP (occurrence: JP)
  Receive Date: 20201030
  Receipt Date: 20201103
  Transmission Date: 20210114
  Serious: Yes (Death)
  Sender: FDA-Public Use
  Company Number: JP-JNJFOC-20201046718

PATIENT
  Age: 80 Year
  Sex: Female
  Weight: 59.6 kg

DRUGS (19)
  1. FEBURIC [Concomitant]
     Active Substance: FEBUXOSTAT
     Dosage: UNK UNK, TID
     Route: 048
  2. BROTIZOLAM [Concomitant]
     Active Substance: BROTIZOLAM
     Dosage: UNK UNK, TID
     Route: 048
  3. VENTAVIS [Suspect]
     Active Substance: ILOPROST
     Indication: PULMONARY ARTERIAL HYPERTENSION
     Route: 065
     Dates: start: 20200326, end: 20200417
  4. VENTAVIS [Suspect]
     Active Substance: ILOPROST
     Indication: SCLERODERMA
  5. DIART [Concomitant]
     Active Substance: AZOSEMIDE
     Dosage: UNK UNK, TID
     Route: 048
  6. FORXIGA [Concomitant]
     Active Substance: DAPAGLIFLOZIN
     Dosage: UNK UNK, TID
     Route: 048
  7. CRESTOR OD [Concomitant]
     Active Substance: ROSUVASTATIN CALCIUM
     Dosage: UNK UNK, TID
     Route: 048
  8. SAMSCA [Concomitant]
     Active Substance: TOLVAPTAN
     Dosage: UNK UNK, TID
     Route: 048
  9. OXYGEN. [Concomitant]
     Active Substance: OXYGEN
  10. FERROUS SODIUM CITRATE [Concomitant]
     Active Substance: SODIUM FERROUS CITRATE
     Dosage: UNK UNK, TID
     Route: 048
  11. MIYA-BM [Concomitant]
     Active Substance: CLOSTRIDIUM BUTYRICUM SPORES STRAIN M-55
     Dosage: DAILY DOSE 3 DF
     Route: 048
  12. LANSOPRAZOLE. [Concomitant]
     Active Substance: LANSOPRAZOLE
     Dosage: UNK UNK, TID
     Route: 048
  13. TORASEMIDE [Concomitant]
     Active Substance: TORSEMIDE
     Dosage: UNK UNK, TID
     Route: 048
  14. SPIRONOLACTONE. [Concomitant]
     Active Substance: SPIRONOLACTONE
     Dosage: UNK UNK, TID
     Route: 048
  15. REBAMIPIDE [Concomitant]
     Active Substance: REBAMIPIDE
     Dosage: DAILY DOSE 3 DF
     Route: 048
  16. L-CARBOCISTEINE [Concomitant]
     Active Substance: CARBOCYSTEINE
     Dosage: DAILY DOSE 3 DF
     Route: 048
  17. TAMBOCOR [Concomitant]
     Active Substance: FLECAINIDE ACETATE
     Dosage: UNK UNK, TID
     Route: 048
  18. MAGNESIUM OXIDE. [Concomitant]
     Active Substance: MAGNESIUM OXIDE
     Dosage: UNK UNK, TID
     Route: 048
  19. AMLODIPINE OD TYK [Concomitant]
     Active Substance: AMLODIPINE BESYLATE
     Dosage: UNK UNK, TID
     Route: 048

REACTIONS (3)
  - Inappropriate schedule of product administration [Unknown]
  - Product use issue [Unknown]
  - Pulmonary hypertension [Fatal]
